FAERS Safety Report 15406324 (Version 1)
Quarter: 2018Q3

REPORT INFORMATION
  Report Type: Spontaneous
  Country: US (occurrence: US)
  Receive Date: 20180918
  Receipt Date: 20180918
  Transmission Date: 20181010
  Serious: No
  Sender: FDA-Public Use
  Company Number: None

PATIENT
  Age: 21 Year
  Sex: Female

DRUGS (1)
  1. TESTOSTERONE CYPIONATE. [Suspect]
     Active Substance: TESTOSTERONE CYPIONATE
     Indication: GENDER DYSPHORIA
     Dosage: ?          QUANTITY:0.5 ML;OTHER FREQUENCY:WEEKLY;OTHER ROUTE:INJECTION SUBCUTANEOUSLY?
     Dates: start: 20160318, end: 20180701

REACTIONS (5)
  - Anxiety disorder [None]
  - Anger [None]
  - Dysphonia [None]
  - Hirsutism [None]
  - Affective disorder [None]

NARRATIVE: CASE EVENT DATE: 20170326
